FAERS Safety Report 5148119-4 (Version None)
Quarter: 2006Q4

REPORT INFORMATION
  Report Type: 
  Country: None (occurrence: None)
  Receive Date: 20061106
  Receipt Date: 20061024
  Transmission Date: 20070319
  Serious: Yes (Hospitalization)
  Sender: FDA-Public Use
  Company Number: 2006119932

PATIENT
  Age: 56 Year
  Sex: Female
  Weight: 48.6 kg

DRUGS (13)
  1. SUTENT [Suspect]
     Indication: RENAL CELL CARCINOMA STAGE UNSPECIFIED
     Dosage: 25 MG (25 MG, 1 IN 1 D), ORAL
     Route: 048
     Dates: start: 20051216
  2. MILPAR (MAGNESIUM HYDROXIDE, PARAFFIN, LIQUID) [Concomitant]
  3. PAMIDRONATE DISODIUM [Concomitant]
  4. DEXAMETHASONE TAB [Concomitant]
  5. VOLTAPROL (DICLOFENAC SODIUM) [Concomitant]
  6. TRAMADOL HCL [Concomitant]
  7. ORAMORPH SR [Concomitant]
  8. LANSOPRAZOLE [Concomitant]
  9. CHLORHEXIDINE (CHLORHEXIDINE) [Concomitant]
  10. METOCLOPRAMIDE [Concomitant]
  11. SUCRALFATE [Concomitant]
  12. SENNOSIDE B (SENNOSIDE B) [Concomitant]
  13. MEDROXYPROGESTERONE [Concomitant]

REACTIONS (18)
  - ANOREXIA [None]
  - BACK PAIN [None]
  - CARDIOMEGALY [None]
  - DIARRHOEA [None]
  - EPILEPSY [None]
  - EYE SWELLING [None]
  - FALL [None]
  - FLUSHING [None]
  - GAIT DISTURBANCE [None]
  - HYPERCALCAEMIA [None]
  - NAUSEA [None]
  - POLLAKIURIA [None]
  - STOMATITIS [None]
  - SWELLING FACE [None]
  - THROMBOCYTOPENIA [None]
  - TOOTH DISORDER [None]
  - VOMITING [None]
  - YELLOW SKIN [None]
